FAERS Safety Report 8799311 (Version 3)
Quarter: 2012Q4

REPORT INFORMATION
  Report Type: 
  Country: US (occurrence: US)
  Receive Date: 20120920
  Receipt Date: 20121024
  Transmission Date: 20130627
  Serious: Yes (Hospitalization, Other)
  Sender: FDA-Public Use
  Company Number: US-GILEAD-2012-0061565

PATIENT
  Age: 27 Year
  Sex: Female

DRUGS (6)
  1. LETAIRIS [Suspect]
     Indication: PULMONARY HYPERTENSION
     Dosage: 10 mg, UNK
     Route: 048
     Dates: start: 20120405, end: 20120917
  2. TYVASO [Concomitant]
     Indication: PULMONARY ARTERIAL HYPERTENSION
     Dosage: 216 UNK, UNK
     Dates: start: 20120413
  3. VITAMIN B [Concomitant]
  4. ISONIAZID [Concomitant]
  5. CALCIUM [Concomitant]
  6. VITAMINS WITH MINERALS [Concomitant]

REACTIONS (2)
  - Pregnancy test positive [Recovered/Resolved]
  - Abortion induced [Recovered/Resolved]
